FAERS Safety Report 10473802 (Version 3)
Quarter: 2015Q3

REPORT INFORMATION
  Report Type: Spontaneous
  Country: DK (occurrence: DK)
  Receive Date: 20140924
  Receipt Date: 20150714
  Transmission Date: 20151125
  Serious: Yes (Hospitalization)
  Sender: FDA-Public Use
  Company Number: DK-ACTAVIS-2014-20373

PATIENT
  Age: 75 Year
  Sex: Male

DRUGS (10)
  1. FUROSEMIDE (UNKNOWN) [Suspect]
     Active Substance: FUROSEMIDE
     Dosage: 40 MG, BID
     Route: 065
     Dates: start: 200702, end: 20140829
  2. CARVEDILOL. [Concomitant]
     Active Substance: CARVEDILOL
     Indication: CARDIAC FAILURE
     Dosage: 12.5 MG, BID
     Route: 065
     Dates: start: 1999
  3. FUROSEMIDE (UNKNOWN) [Suspect]
     Active Substance: FUROSEMIDE
     Indication: CARDIAC FAILURE
     Dosage: 40 MG, BID
     Route: 065
     Dates: start: 20150403
  4. SPIRONOLACTONE (UNKNOWN) [Suspect]
     Active Substance: SPIRONOLACTONE
     Indication: CARDIAC FAILURE
     Dosage: 12.5 MG, DAILY
     Route: 065
     Dates: start: 20131029, end: 20140822
  5. SIMVASTATIN. [Concomitant]
     Active Substance: SIMVASTATIN
     Indication: MYOCARDIAL ISCHAEMIA
     Dosage: 40 MG, DAILY
     Route: 065
     Dates: start: 20120901, end: 20140828
  6. ALENDRONIC ACID (UNKNOWN) [Suspect]
     Active Substance: ALENDRONIC ACID
     Indication: OSTEOPOROSIS
     Dosage: 70 MG, 1/WEEK
     Route: 065
     Dates: start: 20110930
  7. ENALAPRIL [Concomitant]
     Active Substance: ENALAPRIL
     Indication: CARDIAC FAILURE CHRONIC
     Dosage: UNK
     Route: 048
     Dates: start: 20091221
  8. FUROSEMIDE (UNKNOWN) [Suspect]
     Active Substance: FUROSEMIDE
     Dosage: 40 MG, BID
     Route: 065
     Dates: start: 200702
  9. ISOSORBIDE DINITRATE (UNKNOWN) [Suspect]
     Active Substance: ISOSORBIDE DINITRATE
     Indication: MYOCARDIAL ISCHAEMIA
     Dosage: 60 MG, DAILY
     Route: 065
     Dates: start: 20100514, end: 20140828
  10. ALISKIREN [Concomitant]
     Active Substance: ALISKIREN
     Indication: CARDIAC FAILURE CHRONIC
     Dosage: UNK; CODE NOT BROKEN
     Route: 048
     Dates: start: 20091221, end: 20100111

REACTIONS (3)
  - Asthenia [Unknown]
  - Dehydration [Recovering/Resolving]
  - Asthenia [Recovering/Resolving]

NARRATIVE: CASE EVENT DATE: 20140822
